FAERS Safety Report 6484925-1 (Version None)
Quarter: 2009Q4

REPORT INFORMATION
  Report Type: 
  Country: None (occurrence: None)
  Receive Date: 20091209
  Receipt Date: 20091203
  Transmission Date: 20100525
  Serious: Yes (Hospitalization)
  Sender: FDA-Public Use
  Company Number: DE-WYE-G05047709

PATIENT
  Sex: Female
  Weight: 70 kg

DRUGS (3)
  1. SPALT MOBIL [Suspect]
     Dosage: 4000 MG IBUPROFEN ONCE TOTAL
     Route: 048
     Dates: start: 20091109, end: 20091109
  2. ZOPICLONE [Suspect]
     Dosage: 37.5 MG ZOPLICONE, 1 IN 1 TOTAL
     Route: 048
     Dates: start: 20091109, end: 20091109
  3. IMODIUM [Suspect]
     Dosage: 2 DOSES (2X2 MG), 1 IN ON1 TOTAL
     Route: 048
     Dates: start: 20091109, end: 20091109

REACTIONS (2)
  - INTENTIONAL OVERDOSE [None]
  - SUICIDE ATTEMPT [None]
